FAERS Safety Report 5411104-9 (Version None)
Quarter: 2007Q3

REPORT INFORMATION
  Report Type: 
  Country: None (occurrence: None)
  Receive Date: 20070713
  Receipt Date: 20070417
  Transmission Date: 20080115
  Serious: No
  Sender: FDA-Public Use
  Company Number: 2007SP001413

PATIENT

DRUGS (1)
  1. LUNESTA [Suspect]
     Dosage: 2 MG;ORAL ; 3 MG;ORAL
     Route: 048

REACTIONS (1)
  - DYSGEUSIA [None]
